FAERS Safety Report 8488569-1 (Version None)
Quarter: 2012Q3

REPORT INFORMATION
  Report Type: 
  Country: None (occurrence: None)
  Receive Date: 20120705
  Receipt Date: 20120627
  Transmission Date: 20120928
  Serious: Yes (Death)
  Sender: FDA-Public Use
  Company Number: US-GENZYME-FABR-1002600

PATIENT
  Sex: Female
  Weight: 85 kg

DRUGS (2)
  1. FABRAZYME [Suspect]
     Dosage: UNK
     Route: 042
     Dates: end: 20100719
  2. FABRAZYME [Suspect]
     Indication: FABRY'S DISEASE
     Dosage: 1 MG/KG, Q2W
     Route: 042
     Dates: start: 20120322

REACTIONS (1)
  - DEATH [None]
